FAERS Safety Report 6931990-0 (Version None)
Quarter: 2010Q3

REPORT INFORMATION
  Report Type: 
  Country: None (occurrence: None)
  Receive Date: 20100819
  Receipt Date: 20100701
  Transmission Date: 20110219
  Serious: No
  Sender: FDA-Public Use
  Company Number: GB-GILEAD-2010-0030147

PATIENT
  Sex: Female

DRUGS (3)
  1. VIREAD [Suspect]
     Indication: HIV INFECTION
     Route: 064
  2. ABACAVIR [Suspect]
     Indication: ANTIRETROVIRAL THERAPY
     Route: 064
  3. KALETRA [Suspect]
     Indication: ANTIRETROVIRAL THERAPY
     Route: 064

REACTIONS (1)
  - CLEFT LIP AND PALATE [None]
